FAERS Safety Report 7258836-8 (Version None)
Quarter: 2011Q1

REPORT INFORMATION
  Report Type: 
  Country: None (occurrence: None)
  Receive Date: 20110129
  Receipt Date: 20100503
  Transmission Date: 20110831
  Serious: No
  Sender: FDA-Public Use
  Company Number: US-ABBOTT-10P-163-0642731-00

PATIENT
  Sex: Female

DRUGS (2)
  1. ALBUTEROL [Concomitant]
     Indication: ASTHMA
     Route: 055
  2. HUMIRA [Suspect]
     Indication: RHEUMATOID ARTHRITIS
     Route: 058
     Dates: start: 20080701

REACTIONS (8)
  - RHEUMATOID LUNG [None]
  - COUGH [None]
  - MUSCULAR WEAKNESS [None]
  - FATIGUE [None]
  - DYSPNOEA [None]
  - MUSCLE SPASMS [None]
  - FALL [None]
  - CONTUSION [None]
